FAERS Safety Report 8984649 (Version 1)
Quarter: 2012Q4

REPORT INFORMATION
  Report Type: 
  Country: US (occurrence: US)
  Receive Date: 20121226
  Receipt Date: 20121226
  Transmission Date: 20130627
  Serious: No
  Sender: FDA-Public Use
  Company Number: US-BAYER-2012-130258

PATIENT
  Sex: Female
  Weight: 104 kg

DRUGS (5)
  1. BETASERON [Suspect]
     Indication: MULTIPLE SCLEROSIS
     Dosage: 0.3 mg (1 ml), QOD
     Route: 058
     Dates: start: 200712, end: 200912
  2. PAXIL [Concomitant]
  3. VITAMIN A [Concomitant]
  4. VITAMIN C [Concomitant]
  5. VITAMIN D [Concomitant]

REACTIONS (3)
  - Migraine [None]
  - Tremor [None]
  - Feeling abnormal [None]
